FAERS Safety Report 18748217 (Version 1)
Quarter: 2021Q1

REPORT INFORMATION
  Report Type: Spontaneous
  Country: NL (occurrence: NL)
  Receive Date: 20210116
  Receipt Date: 20210116
  Transmission Date: 20210419
  Serious: Yes (Other)
  Sender: FDA-Public Use
  Company Number: NL-AUROBINDO-AUR-APL-2021-001329

PATIENT
  Sex: Male
  Weight: 94 kg

DRUGS (2)
  1. LERCANIDIPINE [Concomitant]
     Active Substance: LERCANIDIPINE
     Indication: PRODUCT USED FOR UNKNOWN INDICATION
     Dosage: 10 MILLIGRAM
     Route: 065
  2. PERINDOPRIL 2MG, TABLETS [Suspect]
     Active Substance: PERINDOPRIL
     Indication: HYPERTENSION
     Dosage: 6 MILLIGRAM, ONCE A DAY (1 X PER DAG 3 STUK)
     Route: 065
     Dates: start: 2016

REACTIONS (1)
  - Erectile dysfunction [Not Recovered/Not Resolved]
